FAERS Safety Report 7557329-8 (Version None)
Quarter: 2011Q2

REPORT INFORMATION
  Report Type: 
  Country: None (occurrence: None)
  Receive Date: 20110620
  Receipt Date: 20110606
  Transmission Date: 20111010
  Serious: Yes (Life-Threatening, Hospitalization, Other)
  Sender: FDA-Public Use
  Company Number: US-JNJFOC-20091004215

PATIENT
  Sex: Female
  Weight: 68.04 kg

DRUGS (4)
  1. IMURAN [Suspect]
     Dates: start: 20090601, end: 20090801
  2. VITAMIN TAB [Concomitant]
  3. REMICADE [Suspect]
     Indication: CROHN'S DISEASE
     Route: 042
     Dates: start: 20060101, end: 20090801
  4. IMURAN [Suspect]
     Indication: CROHN'S DISEASE
     Dates: end: 20081201

REACTIONS (2)
  - HEPATOSPLENIC T-CELL LYMPHOMA [None]
  - HEADACHE [None]
